FAERS Safety Report 25823808 (Version 1)
Quarter: 2025Q3

REPORT INFORMATION
  Report Type: Spontaneous
  Country: EU (occurrence: EU)
  Receive Date: 20250919
  Receipt Date: 20250919
  Transmission Date: 20251021
  Serious: Yes (Disabling, Other)
  Sender: BAYER HEALTHCARE PHARMACEUTICALS INC.
  Company Number: None

PATIENT
  Age: 52 Year
  Sex: Female
  Weight: 59 kg

DRUGS (3)
  1. AVELOX [Suspect]
     Active Substance: MOXIFLOXACIN HYDROCHLORIDE
     Indication: Sinusitis
     Dosage: 1 DF, QD
     Route: 048
     Dates: start: 20250626, end: 20250709
  2. MEDROL [Concomitant]
     Active Substance: METHYLPREDNISOLONE
     Indication: Sinusitis
     Route: 048
     Dates: start: 20250627, end: 20250711
  3. Aurid [Concomitant]
     Indication: Sinusitis
     Dosage: 1 DF, BID
     Route: 045
     Dates: start: 20250626, end: 20250715

REACTIONS (1)
  - Pigment dispersion syndrome [Recovered/Resolved]

NARRATIVE: CASE EVENT DATE: 20250626
